FAERS Safety Report 7009609-2 (Version None)
Quarter: 2010Q3

REPORT INFORMATION
  Report Type: 
  Country: None (occurrence: None)
  Receive Date: 20100923
  Receipt Date: 20100913
  Transmission Date: 20110219
  Serious: Yes (Other)
  Sender: FDA-Public Use
  Company Number: BE-PFIZER INC-2010070718

PATIENT
  Age: 66 Year
  Sex: Male

DRUGS (3)
  1. XALATAN [Suspect]
     Indication: INTRAOCULAR PRESSURE INCREASED
     Dosage: UNK
     Route: 031
     Dates: start: 20100518
  2. ARTEOPTIC [Suspect]
     Indication: INTRAOCULAR PRESSURE INCREASED
     Dosage: 2%, TAKEN ONCE DAILY
     Route: 031
     Dates: start: 20100511, end: 20100514
  3. IRBESARTAN [Concomitant]
     Indication: HYPERTENSION
     Dosage: UNK

REACTIONS (3)
  - ARRHYTHMIA SUPRAVENTRICULAR [None]
  - BRADYCARDIA [None]
  - HYPOTENSION [None]
